FAERS Safety Report 6620749-X (Version None)
Quarter: 2010Q1

REPORT INFORMATION
  Report Type: 
  Country: None (occurrence: None)
  Receive Date: 20100309
  Receipt Date: 20100301
  Transmission Date: 20100710
  Serious: Yes (Death)
  Sender: FDA-Public Use
  Company Number: US-MYLANLABS-2009S1006733

PATIENT
  Age: 69 Year
  Sex: Male
  Weight: 52.16 kg

DRUGS (33)
  1. FENTANYL CITRATE [Suspect]
     Indication: PAIN
     Dosage: CHANGED Q72H
     Route: 062
     Dates: start: 20080901, end: 20080903
  2. FENTANYL CITRATE [Suspect]
     Indication: OSTEOARTHRITIS
     Dosage: CHANGED Q72H
     Route: 062
     Dates: start: 20080901, end: 20080903
  3. TRAMADOL HCL [Suspect]
     Indication: PAIN
     Route: 048
  4. TRAMADOL HCL [Suspect]
     Indication: OSTEOARTHRITIS
     Route: 048
  5. OXYCODONE HCL [Suspect]
     Indication: PAIN
     Route: 048
  6. OXYCODONE HCL [Suspect]
     Indication: OSTEOARTHRITIS
     Route: 048
  7. NEURONTIN [Suspect]
  8. LIDOCAINE [Suspect]
     Route: 062
  9. PRILOSEC [Concomitant]
  10. CALTRATE [Concomitant]
  11. CRANBERRY /01512301/ [Concomitant]
  12. DILAUDID [Concomitant]
  13. LIPITOR [Concomitant]
  14. VASOTEC [Concomitant]
  15. TOPROL-XL [Concomitant]
  16. VITAMIN B-12 [Concomitant]
  17. COLACE [Concomitant]
  18. SENNA [Concomitant]
  19. MIRALAX [Concomitant]
  20. ZINC [Concomitant]
  21. VITAMIN E [Concomitant]
  22. FOSAMAX [Concomitant]
  23. AVODART [Concomitant]
  24. FLOMAX /01280302/ [Concomitant]
  25. AMBIEN [Concomitant]
  26. VICODIN [Concomitant]
  27. TYLENOL W/ CODEINE [Concomitant]
  28. ARICEPT [Concomitant]
  29. BABY ASPIRIN [Concomitant]
  30. BEE POLLEN [Concomitant]
  31. VITAMIN C [Concomitant]
  32. FOLIC ACID [Concomitant]
  33. FISH OIL [Concomitant]

REACTIONS (7)
  - CARDIAC DISORDER [None]
  - FLUID RETENTION [None]
  - MULTI-ORGAN FAILURE [None]
  - OVERDOSE [None]
  - RESPIRATORY ARREST [None]
  - SOMNOLENCE [None]
  - VOMITING [None]
